FAERS Safety Report 14646455 (Version 1)
Quarter: 2018Q1

REPORT INFORMATION
  Report Type: Spontaneous
  Country: FR (occurrence: FR)
  Receive Date: 20180316
  Receipt Date: 20180316
  Transmission Date: 20180509
  Serious: Yes (Other)
  Sender: FDA-Public Use
  Company Number: FR-MERCK KGAA-2043885

PATIENT
  Age: 53 Year
  Sex: Female

DRUGS (1)
  1. NOVOTHYROX [Suspect]
     Active Substance: LEVOTHYROXINE SODIUM
     Indication: PRODUCT USED FOR UNKNOWN INDICATION

REACTIONS (19)
  - Migraine [None]
  - Impaired work ability [None]
  - Feeling of despair [None]
  - Pain [None]
  - Blood cholesterol increased [None]
  - Headache [None]
  - Dizziness [None]
  - Fatigue [None]
  - Blood thyroid stimulating hormone decreased [None]
  - Social avoidant behaviour [None]
  - Blood thyroid stimulating hormone increased [None]
  - Hyperthyroidism [None]
  - Balance disorder [None]
  - Memory impairment [None]
  - Asthenia [None]
  - Hot flush [None]
  - Loss of consciousness [None]
  - Blood test abnormal [None]
  - Somnolence [None]

NARRATIVE: CASE EVENT DATE: 20170401
